FAERS Safety Report 8827700 (Version 5)
Quarter: 2013Q3

REPORT INFORMATION
  Report Type: Spontaneous
  Country: US (occurrence: US)
  Receive Date: 20121008
  Receipt Date: 20130725
  Transmission Date: 20140515
  Serious: No
  Sender: FDA-Public Use
  Company Number: US-PFIZER INC-2012244449

PATIENT
  Age: 66 Year
  Sex: Female
  Weight: 59.86 kg

DRUGS (8)
  1. SUTENT [Suspect]
     Indication: GASTROINTESTINAL STROMAL TUMOUR
     Dosage: 37.5 MG (25MG AND 12.5MG), 1X/DAY
     Route: 048
     Dates: start: 20120907
  2. SUTENT [Suspect]
     Dosage: 37.5 MG, (25MG AND 12.5MG)
     Route: 048
     Dates: start: 20121015
  3. SUTENT [Suspect]
     Dosage: CYCLE 4, 25MG, ON 21 DAYS, OFF 7 DAYS
     Route: 048
     Dates: start: 20121212
  4. SUTENT [Suspect]
     Dosage: 37.5 MG, CYCLIC
     Route: 048
     Dates: start: 201209
  5. CALCIUM [Concomitant]
     Dosage: UNK
  6. IRON [Concomitant]
     Indication: ANAEMIA
     Dosage: UNK
  7. OMEPRAZOLE [Concomitant]
     Indication: GASTRIC ULCER
     Dosage: 40 MG, 1X/DAY
  8. OMEPRAZOLE [Concomitant]
     Indication: GASTROOESOPHAGEAL REFLUX DISEASE

REACTIONS (26)
  - Dysgeusia [Not Recovered/Not Resolved]
  - Pain in extremity [Unknown]
  - Blister [Not Recovered/Not Resolved]
  - Oral pain [Unknown]
  - Speech disorder [Not Recovered/Not Resolved]
  - Tooth socket haemorrhage [Not Recovered/Not Resolved]
  - Tongue blistering [Recovered/Resolved]
  - Hyperaesthesia [Not Recovered/Not Resolved]
  - Lip pain [Not Recovered/Not Resolved]
  - Glossodynia [Not Recovered/Not Resolved]
  - White blood cell count decreased [Unknown]
  - Headache [Recovered/Resolved]
  - Gingival bleeding [Not Recovered/Not Resolved]
  - Palmar-plantar erythrodysaesthesia syndrome [Unknown]
  - Fatigue [Not Recovered/Not Resolved]
  - Hyperkeratosis [Unknown]
  - Laceration [Recovered/Resolved]
  - Back pain [Not Recovered/Not Resolved]
  - Arthropathy [Unknown]
  - Weight decreased [Unknown]
  - Skin lesion [Not Recovered/Not Resolved]
  - Scab [Unknown]
  - Diarrhoea [Unknown]
  - Ageusia [Unknown]
  - Skin induration [Unknown]
  - Alopecia [Unknown]
